FAERS Safety Report 4461081-2 (Version None)
Quarter: 2004Q3

REPORT INFORMATION
  Report Type: 
  Country: None (occurrence: None)
  Receive Date: 20040916
  Receipt Date: 20040719
  Transmission Date: 20050211
  Serious: Yes (Hospitalization, Other)
  Sender: FDA-Public Use
  Company Number: FR-BRISTOL-MYERS SQUIBB COMPANY-12646907

PATIENT
  Age: 40 Year
  Sex: Male
  Weight: 77 kg

DRUGS (5)
  1. SUSTIVA [Suspect]
     Indication: HIV INFECTION
     Dosage: THERAPY STOPPED ON 15-APR-2004 THEN RE-STARTED ON 15-MAY-2004
     Route: 048
     Dates: start: 20030313, end: 20040529
  2. ZIAGEN [Suspect]
     Indication: HIV INFECTION
     Dosage: 150 MG 2/D STOPPED ON 15-APR-2004, THEN RESTARTED ON 15-MAY-2004 TO 29-MAY-2004
     Dates: start: 20030313, end: 20040529
  3. EPIVIR [Suspect]
     Indication: HIV INFECTION
     Dosage: 150 MG 2/D STOPPED ON 15-APR-2004, THEN RESTARTED FROM 15-MAY-2004 TO 29-MAY-2004
     Dates: start: 20030313
  4. PEG-IFN [Suspect]
     Dates: start: 20031001, end: 20031101
  5. REBETOL [Suspect]
     Dates: start: 20031001, end: 20031101

REACTIONS (3)
  - BLOOD TRIGLYCERIDES INCREASED [None]
  - DRUG HYPERSENSITIVITY [None]
  - PANCREATITIS [None]
